FAERS Safety Report 4882363-6 (Version None)
Quarter: 2006Q1

REPORT INFORMATION
  Report Type: 
  Country: None (occurrence: None)
  Receive Date: 20060117
  Receipt Date: 20060105
  Transmission Date: 20060701
  Serious: Yes (Life-Threatening)
  Sender: FDA-Public Use
  Company Number: JP-ROCHE-430859

PATIENT
  Age: 58 Year
  Sex: Male

DRUGS (8)
  1. NICARDIPINE HCL [Suspect]
     Indication: HYPERTENSION
     Dosage: 22/OCT/05 INFUSION RATE 3-10MG/HR.  26/OCT/05 INFUSION RATE 15-17MG/HR.  27/OCT/05 INFUSION RATE 17+
     Route: 042
     Dates: start: 20051022, end: 20051031
  2. NICARDIPINE HCL [Suspect]
     Dosage: 17/OCT/05 INFUSION RATE 8MG/HR. 19/OCT05 INFUSION RATE 33MG/HR.
     Route: 042
     Dates: start: 20051017, end: 20051020
  3. ARTIST [Suspect]
     Indication: HYPERTENSION
     Route: 048
     Dates: start: 20051018, end: 20051031
  4. HERBESSER [Suspect]
     Indication: HYPERTENSION
     Route: 042
     Dates: start: 20051031, end: 20051031
  5. AMLODIN [Suspect]
     Indication: HYPERTENSION
     Route: 048
     Dates: start: 20051017, end: 20051031
  6. ADALAT [Suspect]
     Indication: HYPERTENSION
     Route: 048
     Dates: start: 20051018, end: 20051031
  7. CALSLOT [Suspect]
     Indication: HYPERTENSION
     Route: 048
     Dates: start: 20051021, end: 20051031
  8. CARDENALIN [Suspect]
     Indication: HYPERTENSION
     Route: 048
     Dates: start: 20051021, end: 20051031

REACTIONS (5)
  - BLOOD PRESSURE INCREASED [None]
  - CARDIAC ARREST [None]
  - DEPRESSED LEVEL OF CONSCIOUSNESS [None]
  - ELECTROMECHANICAL DISSOCIATION [None]
  - PHLEBITIS [None]
